FAERS Safety Report 9799291 (Version 1)
Quarter: 2014Q1

REPORT INFORMATION
  Report Type: Spontaneous
  Country: BR (occurrence: BR)
  Receive Date: 20140106
  Receipt Date: 20140106
  Transmission Date: 20141002
  Serious: Yes (Other)
  Sender: FDA-Public Use
  Company Number: BR-ELI_LILLY_AND_COMPANY-BR201312008570

PATIENT
  Sex: Female

DRUGS (13)
  1. HUMULIN R [Suspect]
     Indication: DIABETES MELLITUS
     Dosage: 8 IU, EACH MORNING
     Route: 058
  2. HUMULIN R [Suspect]
     Dosage: 8 IU, QD
     Route: 058
  3. HUMULIN R [Suspect]
     Dosage: 8 IU, EACH EVENING
     Route: 058
  4. NOVOLIN [Concomitant]
     Indication: DIABETES MELLITUS
     Dosage: 34 IU, EACH MORNING
     Route: 065
  5. NOVOLIN [Concomitant]
     Dosage: 34 IU, QD
     Route: 065
  6. NOVOLIN [Concomitant]
     Dosage: 34 IU, EACH EVENING
     Route: 065
  7. METFORMINA                         /00082701/ [Concomitant]
     Indication: DIABETES MELLITUS
     Dosage: 850 MG, EACH MORNING
     Route: 065
  8. METFORMINA                         /00082701/ [Concomitant]
     Dosage: 850 MG, QD
     Route: 065
  9. METFORMINA                         /00082701/ [Concomitant]
     Dosage: 850 MG, EACH EVENING
     Route: 065
  10. GLIMEPIRIDA [Concomitant]
     Indication: DIABETES MELLITUS
     Dosage: UNK, QD
     Route: 065
  11. LOSARTAN [Concomitant]
     Indication: HYPERTENSION
     Dosage: 50 MG, EACH MORNING
     Route: 065
  12. LOSARTAN [Concomitant]
     Dosage: 50 MG, EACH EVENING
     Route: 065
  13. HIDROCLOROTIAZIDA [Concomitant]
     Indication: HYPERTENSION
     Dosage: 25 MG, EACH MORNING
     Route: 065

REACTIONS (2)
  - Blood glucose increased [Recovered/Resolved]
  - Intentional drug misuse [Unknown]
